FAERS Safety Report 24259313 (Version 1)
Quarter: 2024Q3

REPORT INFORMATION
  Report Type: Spontaneous
  Country: US (occurrence: None)
  Receive Date: 20240828
  Receipt Date: 20240828
  Transmission Date: 20241016
  Serious: No
  Sender: Public
  Company Number: None

PATIENT
  Age: 72 Year
  Sex: Male

DRUGS (1)
  1. HUMIRA [Suspect]
     Active Substance: ADALIMUMAB
     Indication: Pyoderma gangrenosum
     Dosage: FREQUENCY : WEEKLY;?
     Route: 058
     Dates: start: 202408

REACTIONS (6)
  - Osteomyelitis [None]
  - Wound [None]
  - Amputation [None]
  - Pain [None]
  - Therapy interrupted [None]
  - Product distribution issue [None]
